FAERS Safety Report 17823053 (Version 1)
Quarter: 2020Q2

REPORT INFORMATION
  Report Type: Spontaneous
  Country: US (occurrence: US)
  Receive Date: 20200522
  Receipt Date: 20200522
  Transmission Date: 20200714
  Serious: No
  Sender: FDA-Public Use
  Company Number: None

PATIENT
  Age: 29 Year
  Sex: Female
  Weight: 79.38 kg

DRUGS (3)
  1. STERILE WATER FOR INJECTION [Concomitant]
     Active Substance: WATER
     Dates: start: 20200504, end: 20200504
  2. SODIUM CHLORIDE 0.9% [Concomitant]
     Active Substance: SODIUM CHLORIDE
     Dates: start: 20200504, end: 20200504
  3. TEPEZZA [Suspect]
     Active Substance: TEPROTUMUMAB-TRBW
     Indication: TOXIC GOITRE
     Route: 041
     Dates: start: 20200504, end: 20200504

REACTIONS (4)
  - Myalgia [None]
  - Epistaxis [None]
  - Oligomenorrhoea [None]
  - Fatigue [None]

NARRATIVE: CASE EVENT DATE: 20200504
